FAERS Safety Report 5746336-3 (Version None)
Quarter: 2008Q2

REPORT INFORMATION
  Report Type: 
  Country: None (occurrence: None)
  Receive Date: 20080520
  Receipt Date: 20080520
  Transmission Date: 20081010
  Serious: No
  Sender: FDA-Public Use
  Company Number: None

PATIENT
  Sex: Female
  Weight: 64.8644 kg

DRUGS (1)
  1. ORLISTAT   60 MG            GLAXO SMITH KLINE [Suspect]
     Dosage: 60 MG      1 - 3 TIMES A DAY  BUCCAL
     Route: 002
     Dates: start: 20080430, end: 20080513

REACTIONS (1)
  - DIVERTICULUM [None]
